FAERS Safety Report 6206554-7 (Version None)
Quarter: 2009Q2

REPORT INFORMATION
  Report Type: 
  Country: None (occurrence: None)
  Receive Date: 20090527
  Receipt Date: 20090527
  Transmission Date: 20091009
  Serious: Yes (Other)
  Sender: FDA-Public Use
  Company Number: None

PATIENT
  Age: 49 Year
  Sex: Female
  Weight: 61.2356 kg

DRUGS (1)
  1. DOXYCYCLINE HCL [Suspect]
     Indication: BRONCHITIS
     Dosage: 100MG 2X DAILY
     Dates: start: 20090423, end: 20090425

REACTIONS (8)
  - BLISTER [None]
  - DRUG HYPERSENSITIVITY [None]
  - NAUSEA [None]
  - OEDEMA PERIPHERAL [None]
  - PAIN [None]
  - PAIN IN EXTREMITY [None]
  - PARAESTHESIA [None]
  - SKIN BURNING SENSATION [None]
